FAERS Safety Report 16778929 (Version 1)
Quarter: 2019Q3

REPORT INFORMATION
  Report Type: Spontaneous
  Country: US (occurrence: US)
  Receive Date: 20190906
  Receipt Date: 20190906
  Transmission Date: 20191005
  Serious: No
  Sender: FDA-Public Use
  Company Number: US-JNJFOC-20190839985

PATIENT
  Sex: Female
  Weight: 78.09 kg

DRUGS (1)
  1. TYLENOL 8 HR ARTHRITIS PAIN [Suspect]
     Active Substance: ACETAMINOPHEN
     Indication: ANALGESIC THERAPY
     Dosage: 2 TABLETS ONCE
     Route: 048

REACTIONS (3)
  - Fatigue [Recovered/Resolved]
  - Pain [Recovering/Resolving]
  - Drug ineffective [Unknown]
